FAERS Safety Report 22046242 (Version 1)
Quarter: 2023Q1

REPORT INFORMATION
  Report Type: Spontaneous
  Country: US (occurrence: None)
  Receive Date: 20230228
  Receipt Date: 20230228
  Transmission Date: 20230417
  Serious: Yes (Hospitalization)
  Sender: FDA-Public Use
  Company Number: None

PATIENT
  Sex: Female

DRUGS (4)
  1. WILATE - VON WILLEBRAND FACTOR/COAGULATION FACTOR VIII COMPLEX (HUMAN) [Suspect]
     Active Substance: HUMAN COAGULATION FACTOR VIII/VON WILLEBRAND FACTOR COMPLEX
     Indication: Factor VIII deficiency
     Dosage: FREQUENCY : DAILY;?
     Route: 058
     Dates: start: 20230222
  2. HEP LOCK [Concomitant]
  3. NORDITROPIN [Concomitant]
     Active Substance: SOMATROPIN
  4. SOD CHL STRL FLSH [Concomitant]

REACTIONS (1)
  - Bowel obstruction surgery [None]
